FAERS Safety Report 18468923 (Version 2)
Quarter: 2021Q2

REPORT INFORMATION
  Report Type: Report from Study
  Country: US (occurrence: US)
  Receive Date: 20201105
  Receipt Date: 20210504
  Transmission Date: 20210717
  Serious: Yes (Hospitalization)
  Sender: FDA-Public Use
  Company Number: US-GLAXOSMITHKLINE-US2020GSK217233

PATIENT
  Age: 61 Year
  Sex: Male
  Weight: 74.7 kg

DRUGS (3)
  1. BELANTAMAB MAFODOTIN. [Suspect]
     Active Substance: BELANTAMAB MAFODOTIN
     Indication: PLASMA CELL MYELOMA
     Dosage: CYC
     Route: 042
  2. FENTANYL TRANSDERMAL SYSTEM [Concomitant]
     Active Substance: FENTANYL
     Indication: PAIN
     Dosage: 50 MCG/HR Q72 HOURS
     Route: 062
     Dates: start: 20200805
  3. DILAUDID [Concomitant]
     Active Substance: HYDROMORPHONE HYDROCHLORIDE
     Indication: PAIN
     Dosage: 2 MG Q4 HOURS
     Route: 048
     Dates: start: 20200115

REACTIONS (1)
  - Bone pain [Recovered/Resolved]

NARRATIVE: CASE EVENT DATE: 20201027
